FAERS Safety Report 8181980-8 (Version None)
Quarter: 2012Q1

REPORT INFORMATION
  Report Type: 
  Country: None (occurrence: None)
  Receive Date: 20120302
  Receipt Date: 20120221
  Transmission Date: 20120608
  Serious: Yes (Other)
  Sender: FDA-Public Use
  Company Number: PHEH2012US004265

PATIENT
  Sex: Male

DRUGS (3)
  1. CLONAZEPAM [Concomitant]
  2. TEGRETOL [Suspect]
     Dosage: 7 ML,4 TIMES A DAY
  3. KEPPRA [Concomitant]

REACTIONS (6)
  - UNRESPONSIVE TO STIMULI [None]
  - HYPOKINESIA [None]
  - TOXICITY TO VARIOUS AGENTS [None]
  - DRUG LEVEL INCREASED [None]
  - NASOPHARYNGITIS [None]
  - LETHARGY [None]
